FAERS Safety Report 8307037-0 (Version None)
Quarter: 2012Q2

REPORT INFORMATION
  Report Type: 
  Country: None (occurrence: None)
  Receive Date: 20120424
  Receipt Date: 20120418
  Transmission Date: 20120825
  Serious: Yes (Hospitalization)
  Sender: FDA-Public Use
  Company Number: PHHY2012TR032169

PATIENT
  Age: 44 Year
  Sex: Female
  Weight: 95 kg

DRUGS (3)
  1. CALCIUM SANDOZ [Concomitant]
     Indication: CALCIUM DEFICIENCY
     Dosage: 2 DF X 1
     Dates: start: 20120401
  2. SANDOSTATIN LAR [Suspect]
     Indication: ACROMEGALY
     Dosage: 20 MG ONCE IN 28 DAYS
     Route: 030
     Dates: start: 20100101
  3. ANTI-FOSFAT CA [Concomitant]
     Indication: CALCIUM DEFICIENCY
     Dosage: 3 DF X 1
     Dates: start: 20120401

REACTIONS (5)
  - VAGINAL HAEMORRHAGE [None]
  - FATIGUE [None]
  - VITAMIN D DEFICIENCY [None]
  - RED BLOOD CELL SEDIMENTATION RATE INCREASED [None]
  - CALCIUM DEFICIENCY [None]
